FAERS Safety Report 5366919-2 (Version None)
Quarter: 2007Q2

REPORT INFORMATION
  Report Type: 
  Country: None (occurrence: None)
  Receive Date: 20070622
  Receipt Date: 20070122
  Transmission Date: 20071010
  Serious: No
  Sender: FDA-Public Use
  Company Number: US-ASTRAZENECA-2007UW01322

PATIENT
  Age: 24 Year
  Sex: Female

DRUGS (2)
  1. RHINOCORT [Suspect]
     Indication: SINUS DISORDER
     Route: 045
     Dates: start: 20061101
  2. NASAL SPRAY [Concomitant]

REACTIONS (1)
  - MENSTRUATION IRREGULAR [None]
